FAERS Safety Report 4714065-0 (Version None)
Quarter: 2005Q3

REPORT INFORMATION
  Report Type: 
  Country: None (occurrence: None)
  Receive Date: 20050713
  Receipt Date: 20050705
  Transmission Date: 20060218
  Serious: Yes (Hospitalization, Other)
  Sender: FDA-Public Use
  Company Number: CHPA2003US02254

PATIENT
  Age: 44 Year
  Sex: Male
  Weight: 86.6 kg

DRUGS (26)
  1. EX-LAX LAXATIVE (NCH) [Suspect]
     Dosage: ORAL
     Route: 048
     Dates: start: 19800101
  2. CORRECTOL [Suspect]
     Dosage: ORAL
     Route: 048
     Dates: start: 19800101
  3. KEFLEX [Concomitant]
  4. AUGMENTIN '125' [Concomitant]
  5. FLAGYL [Concomitant]
  6. DONNATAL (ATROPINE SULFATE, HYOSCINE HYDROBROMIDE, HYOSCYAMINE SULFATE [Concomitant]
  7. TIMENTIN [Concomitant]
  8. DOXYCYCLINE [Concomitant]
  9. BENTYL [Concomitant]
  10. PEPCID [Concomitant]
  11. RANITIDINE HYDROCHLORIDE [Concomitant]
  12. ADVIL [Concomitant]
  13. METAMUCIL (GLUCOSE MONOHYDRATE, ISPAGHULA HUSK, PLANTAGO OVATA HUSK) [Concomitant]
  14. MULTIVITAMINS (ASCORBIC ACID, ERGOCALCIFEROL, FOLIC ACID, NICOTINAMIDE [Concomitant]
  15. STOOL SOFTENER (DOCUSATE SODIUM) [Concomitant]
  16. THERAFLU /USA/ (DEXTROMETHORPHAN HYDROBROMIDE, PARACETAMOL, PSEUDOEPHE [Concomitant]
  17. PROPOXYPHENE HCL [Concomitant]
  18. IBUPROFEN [Concomitant]
  19. MECLIZINE [Concomitant]
  20. DURATUSS (GUAIFENESIN, PSEUDOEPHEDRINE HYDROCHLORIDE) [Concomitant]
  21. OXAPROZIN [Concomitant]
  22. PRILOSEC [Concomitant]
  23. COLACE (DOCUSATE SODIUM) [Concomitant]
  24. VIOXX [Concomitant]
  25. PAXIL [Concomitant]
  26. TYLENOL (PARACETAMOL) [Concomitant]

REACTIONS (20)
  - ABDOMINAL DISTENSION [None]
  - ABDOMINAL PAIN LOWER [None]
  - ABDOMINAL PAIN UPPER [None]
  - CHEST PAIN [None]
  - CHOLECYSTITIS CHRONIC [None]
  - CHOLELITHIASIS [None]
  - COLITIS [None]
  - CONSTIPATION [None]
  - DIARRHOEA [None]
  - DIVERTICULITIS [None]
  - DRUG DEPENDENCE [None]
  - EMOTIONAL DISORDER [None]
  - GASTRITIS [None]
  - GASTROENTERITIS [None]
  - GASTROOESOPHAGEAL REFLUX DISEASE [None]
  - HAEMATOCHEZIA [None]
  - INJURY [None]
  - LARGE INTESTINE PERFORATION [None]
  - REFUSAL OF EXAMINATION [None]
  - SELF-MEDICATION [None]
